FAERS Safety Report 5400038-1 (Version None)
Quarter: 2007Q3

REPORT INFORMATION
  Report Type: 
  Country: None (occurrence: None)
  Receive Date: 20070726
  Receipt Date: 20070726
  Transmission Date: 20080115
  Serious: Yes (Death)
  Sender: FDA-Public Use
  Company Number: None

PATIENT
  Age: 30 Year
  Sex: Male
  Weight: 133.8111 kg

DRUGS (1)
  1. AVANDARYL [Suspect]
     Indication: TYPE 2 DIABETES MELLITUS
     Dosage: AVAILABLE FROM DOCTOR RECORDS

REACTIONS (4)
  - CARDIAC FAILURE [None]
  - CHROMATURIA [None]
  - FATIGUE [None]
  - SUDDEN DEATH [None]
